FAERS Safety Report 8031239-4 (Version None)
Quarter: 2012Q1

REPORT INFORMATION
  Report Type: 
  Country: None (occurrence: None)
  Receive Date: 20120109
  Receipt Date: 20120103
  Transmission Date: 20120608
  Serious: Yes (Other)
  Sender: FDA-Public Use
  Company Number: US-MERCK-1110USA02085

PATIENT
  Age: 11 Year
  Sex: Female

DRUGS (2)
  1. SINGULAIR [Suspect]
     Indication: ASTHMA
     Route: 048
     Dates: end: 20111011
  2. SINGULAIR [Suspect]
     Indication: HYPERSENSITIVITY
     Route: 048
     Dates: end: 20111011

REACTIONS (5)
  - MENTAL STATUS CHANGES [None]
  - PERSONALITY CHANGE [None]
  - AGGRESSION [None]
  - ACUTE PSYCHOSIS [None]
  - HOMICIDAL IDEATION [None]
